FAERS Safety Report 12563479 (Version 2)
Quarter: 2016Q3

REPORT INFORMATION
  Report Type: Report from Study
  Country: CO (occurrence: CO)
  Receive Date: 20160715
  Receipt Date: 20160830
  Transmission Date: 20161109
  Serious: Yes (Other)
  Sender: FDA-Public Use
  Company Number: CO-REGENERON PHARMACEUTICALS, INC.-2016-19333

PATIENT

DRUGS (1)
  1. EYLEA [Suspect]
     Active Substance: AFLIBERCEPT
     Indication: DIABETIC RETINAL OEDEMA
     Dosage: 1 DF, Q2MON
     Route: 031
     Dates: start: 20150423

REACTIONS (3)
  - Vision blurred [Not Recovered/Not Resolved]
  - Eye disorder [Recovering/Resolving]
  - Intraocular lens implant [Recovering/Resolving]
